FAERS Safety Report 9016272 (Version 1)
Quarter: 2013Q1

REPORT INFORMATION
  Report Type: Spontaneous
  Country: IT (occurrence: IT)
  Receive Date: 20130116
  Receipt Date: 20130116
  Transmission Date: 20140127
  Serious: Yes (Other)
  Sender: FDA-Public Use
  Company Number: IT-BAXTER-2013BAX001332

PATIENT
  Age: 43 Year
  Sex: Female

DRUGS (6)
  1. ENDOXAN BAXTER [Suspect]
     Indication: BREAST CANCER
     Route: 042
     Dates: start: 20121003, end: 20121003
  2. DOCETAXEL [Suspect]
     Indication: BREAST CANCER
     Route: 065
     Dates: start: 20121003, end: 20121003
  3. ONDANSETRON [Concomitant]
     Indication: PRODUCT USED FOR UNKNOWN INDICATION
     Route: 042
     Dates: start: 20121003, end: 20121003
  4. TRIMETON [Concomitant]
     Indication: BREAST CANCER
     Route: 030
     Dates: start: 20121003, end: 20121003
  5. RANIDIL [Concomitant]
     Indication: BREAST CANCER
     Route: 042
     Dates: start: 20121003, end: 20121003
  6. SOLDESAM [Concomitant]
     Indication: BREAST CANCER
     Route: 042
     Dates: start: 20121003, end: 20121003

REACTIONS (5)
  - Conjunctival oedema [Recovering/Resolving]
  - Joint swelling [Recovering/Resolving]
  - Pain in extremity [Recovering/Resolving]
  - Paraesthesia [Recovering/Resolving]
  - Rash [Recovering/Resolving]
